FAERS Safety Report 12406539 (Version 1)
Quarter: 2016Q2

REPORT INFORMATION
  Report Type: Spontaneous
  Country: US (occurrence: None)
  Receive Date: 20160525
  Receipt Date: 20160525
  Transmission Date: 20160815
  Serious: No
  Sender: FDA-Public Use
  Company Number: None

PATIENT
  Age: 37 Year
  Sex: Female

DRUGS (1)
  1. COPAXONE [Suspect]
     Active Substance: GLATIRAMER ACETATE
     Indication: PRODUCT USED FOR UNKNOWN INDICATION
     Route: 058

REACTIONS (7)
  - Tongue disorder [None]
  - Throat tightness [None]
  - Pruritus [None]
  - Product reconstitution issue [None]
  - Feeling hot [None]
  - Erythema [None]
  - Nonspecific reaction [None]

NARRATIVE: CASE EVENT DATE: 20160524
